FAERS Safety Report 9772868 (Version 2)
Quarter: 2014Q2

REPORT INFORMATION
  Report Type: Report from Study
  Country: CZ (occurrence: CZ)
  Receive Date: 20131219
  Receipt Date: 20140502
  Transmission Date: 20141212
  Serious: Yes (Hospitalization)
  Sender: FDA-Public Use
  Company Number: 2013SP003464

PATIENT
  Age: 41 Year
  Sex: Male
  Weight: 78 kg

DRUGS (3)
  1. SM-13496 [Suspect]
     Indication: BIPOLAR DISORDER
     Route: 048
     Dates: start: 20131113
  2. ZYPREXA [Concomitant]
     Indication: BIPOLAR I DISORDER
     Route: 048
     Dates: start: 20131106, end: 20131110
  3. LITHIUM [Concomitant]
     Indication: BIPOLAR I DISORDER
     Route: 048
     Dates: start: 20131106, end: 20131118

REACTIONS (1)
  - Poisoning [Recovered/Resolved]
